FAERS Safety Report 9484514 (Version 1)
Quarter: 2013Q3

REPORT INFORMATION
  Report Type: Spontaneous
  Country: US (occurrence: US)
  Receive Date: 20130828
  Receipt Date: 20130828
  Transmission Date: 20140515
  Serious: No
  Sender: FDA-Public Use
  Company Number: US-ABBOTT-13P-163-1089418-00

PATIENT
  Age: 57 Year
  Sex: Male
  Weight: 93.07 kg

DRUGS (1)
  1. ANDROGEL [Suspect]
     Indication: BLOOD TESTOSTERONE DECREASED
     Dates: start: 201303, end: 20130403

REACTIONS (2)
  - Breast mass [Not Recovered/Not Resolved]
  - Soft tissue mass [Not Recovered/Not Resolved]
